FAERS Safety Report 6011665-5 (Version None)
Quarter: 2008Q4

REPORT INFORMATION
  Report Type: 
  Country: None (occurrence: None)
  Receive Date: 20081218
  Receipt Date: 20080528
  Transmission Date: 20090506
  Serious: No
  Sender: FDA-Public Use
  Company Number: US-BAYER-200812451BCC

PATIENT
  Age: 30 Year
  Sex: Female
  Weight: 109 kg

DRUGS (3)
  1. ALEVE (CAPLET) [Suspect]
     Indication: ARTHRALGIA
     Dosage: TOTAL DAILY DOSE: 880 MG  UNIT DOSE: 220 MG
     Route: 048
     Dates: start: 20080527
  2. ALEVE (CAPLET) [Suspect]
     Dosage: AS USED: 220 MG  UNIT DOSE: 220 MG
     Route: 048
     Dates: start: 20080528
  3. CLONAZEPAM [Concomitant]

REACTIONS (3)
  - ABDOMINAL DISCOMFORT [None]
  - DIARRHOEA [None]
  - DIZZINESS [None]
